FAERS Safety Report 13430881 (Version 1)
Quarter: 2017Q2

REPORT INFORMATION
  Report Type: Report from Study
  Country: US (occurrence: US)
  Receive Date: 20170412
  Receipt Date: 20170412
  Transmission Date: 20170830
  Serious: Yes (Other)
  Sender: FDA-Public Use
  Company Number: US-PFIZER INC-2017154337

PATIENT
  Age: 51 Year
  Sex: Male

DRUGS (1)
  1. IBRANCE [Suspect]
     Active Substance: PALBOCICLIB
     Indication: BREAST CANCER MALE
     Dosage: 125 MG, DAILY
     Route: 048
     Dates: start: 20161108

REACTIONS (11)
  - Dysphonia [Unknown]
  - Contusion [Unknown]
  - Stomatitis [Unknown]
  - Sinus pain [Unknown]
  - Constipation [Unknown]
  - Pruritus [Unknown]
  - Dizziness [Unknown]
  - Chills [Unknown]
  - Diarrhoea [Unknown]
  - Urine flow decreased [Unknown]
  - Product use issue [Unknown]

NARRATIVE: CASE EVENT DATE: 20161108
